FAERS Safety Report 9162344 (Version 1)
Quarter: 2013Q1

REPORT INFORMATION
  Report Type: Spontaneous
  Country: GB (occurrence: None)
  Receive Date: 20130225
  Receipt Date: 20130225
  Transmission Date: 20140127
  Serious: Yes (Other)
  Sender: FDA-Public Use
  Company Number: 2013-02804

PATIENT
  Age: 47 Year
  Sex: Female

DRUGS (9)
  1. DOXYCYCLINE (DOXYCYCLINE) [Suspect]
     Indication: RESPIRATORY TRACT INFECTION
     Route: 048
     Dates: start: 20130128, end: 20130129
  2. VENLAFAXINE HYDROCHLORIDE (VENLAFAXINE HYDROCHLORIDE) [Concomitant]
  3. PREGABALIN [Concomitant]
  4. CETIRIZINE HYDROCHLORIDE [Concomitant]
  5. CHLORPROMAZINE HYDROCHLORIDE [Concomitant]
  6. ZOPICLONE [Concomitant]
  7. CO-CODAMOL [Concomitant]
  8. NAPROXEN [Concomitant]
  9. BECLOMETASONE DIPROPIONATE [Concomitant]

REACTIONS (3)
  - Urticaria [None]
  - Pruritus [None]
  - Pain [None]
